FAERS Safety Report 9236498 (Version 1)
Quarter: 2013Q2

REPORT INFORMATION
  Report Type: Spontaneous
  Country: JP (occurrence: None)
  Receive Date: 20130415
  Receipt Date: 20130415
  Transmission Date: 20140414
  Serious: Yes (Death, Hospitalization)
  Sender: FDA-Public Use
  Company Number: TCI2013A01499

PATIENT
  Age: 92 Year
  Sex: Female

DRUGS (5)
  1. SONIAS COMBINATION TABLETS LD (PIOGLITAZONE HYDROCHLORIDE, GLIMEPIRIDE) [Suspect]
     Indication: TYPE 2 DIABETES MELLITUS
     Dosage: 1 TAB
     Route: 048
     Dates: start: 20120718, end: 20120818
  2. ADALATE L (NIFEDIPINE) [Concomitant]
  3. RECALBON (MINODRONIC ACID) [Concomitant]
  4. ENTELASE (BIODIASTASE 2000) [Concomitant]
  5. MAGMITT (MAGNESIUM OXIDE) [Concomitant]

REACTIONS (2)
  - Bladder cancer [None]
  - Anaemia [None]
